FAERS Safety Report 10478517 (Version 1)
Quarter: 2014Q3

REPORT INFORMATION
  Report Type: Spontaneous
  Country: US (occurrence: None)
  Receive Date: 20140925
  Receipt Date: 20140925
  Transmission Date: 20150326
  Serious: Yes (Other)
  Sender: FDA-Public Use
  Company Number: None

PATIENT
  Age: 77 Year
  Sex: Female
  Weight: 58.06 kg

DRUGS (1)
  1. VANCOMYCIN 125 MG HOSPIRA [Suspect]
     Active Substance: VANCOMYCIN
     Indication: CLOSTRIDIUM DIFFICILE INFECTION
     Dosage: 1 TSP. 5 ML^S THREE TIMES DAILY TAKEN BY MOUTH
     Route: 048

REACTIONS (2)
  - Dental plaque [None]
  - Skin discolouration [None]
